FAERS Safety Report 8312575-0 (Version None)
Quarter: 2012Q2

REPORT INFORMATION
  Report Type: 
  Country: None (occurrence: None)
  Receive Date: 20120424
  Receipt Date: 20120409
  Transmission Date: 20120825
  Serious: Yes (Hospitalization)
  Sender: FDA-Public Use
  Company Number: 2012MA004740

PATIENT
  Age: 61 Year
  Sex: Male

DRUGS (2)
  1. DIAZEPAM [Concomitant]
  2. HALOPERIDOL LACTATE [Suspect]
     Dates: start: 19750101

REACTIONS (6)
  - DYSPNOEA [None]
  - SINUS TACHYCARDIA [None]
  - RESPIRATORY ALKALOSIS [None]
  - GRUNTING [None]
  - BREATH SOUNDS ABNORMAL [None]
  - DYSKINESIA [None]
